FAERS Safety Report 23549606 (Version 1)
Quarter: 2024Q1

REPORT INFORMATION
  Report Type: Spontaneous
  Country: US (occurrence: None)
  Receive Date: 20240220
  Receipt Date: 20240220
  Transmission Date: 20240410
  Serious: Yes (Disabling)
  Sender: FDA-Public Use
  Company Number: None

PATIENT
  Age: 5 Year
  Sex: Male
  Weight: 38.25 kg

DRUGS (1)
  1. KIRKLAND SIGNATURE LAXACLEAR ORIGINAL PRESCRIPTION STRENGTH [Suspect]
     Active Substance: POLYETHYLENE GLYCOL 3350
     Indication: Constipation
     Dates: start: 20190827, end: 20210827

REACTIONS (2)
  - Tic [None]
  - Disturbance in attention [None]

NARRATIVE: CASE EVENT DATE: 20221001
